FAERS Safety Report 8124277-4 (Version None)
Quarter: 2012Q1

REPORT INFORMATION
  Report Type: 
  Country: None (occurrence: None)
  Receive Date: 20120209
  Receipt Date: 20120203
  Transmission Date: 20120608
  Serious: Yes (Other)
  Sender: FDA-Public Use
  Company Number: BR-PFIZER INC-2012031773

PATIENT
  Age: 35 Year
  Sex: Female

DRUGS (4)
  1. CELEBREX [Suspect]
     Indication: NECK PAIN
  2. LYRICA [Suspect]
     Indication: PAIN IN EXTREMITY
     Dosage: 75MG IN THE MORNING AND 150MG AT NIGHT
     Route: 048
     Dates: start: 20100203
  3. LYRICA [Suspect]
     Indication: NECK PAIN
  4. CELEBREX [Suspect]
     Indication: PAIN IN EXTREMITY
     Dosage: 200 MG (ONE TABLET), 2X/DAY
     Route: 048
     Dates: start: 20110203

REACTIONS (4)
  - NECK PAIN [None]
  - INTERVERTEBRAL DISC PROTRUSION [None]
  - PAIN IN EXTREMITY [None]
  - EXOSTOSIS [None]
